FAERS Safety Report 15237962 (Version 1)
Quarter: 2018Q3

REPORT INFORMATION
  Report Type: Spontaneous
  Country: US (occurrence: US)
  Receive Date: 20180803
  Receipt Date: 20180803
  Transmission Date: 20181010
  Serious: No
  Sender: FDA-Public Use
  Company Number: US-PFIZER INC-2017449546

PATIENT
  Age: 53 Year
  Sex: Female
  Weight: 66.21 kg

DRUGS (2)
  1. DOCETAXEL. [Suspect]
     Active Substance: DOCETAXEL
     Indication: BREAST CANCER
     Dosage: UNK UNK, CYCLIC (FOR 6 CYCLES EVERY 3 WEEKS)
     Dates: start: 201105, end: 201109
  2. TAXOTERE [Suspect]
     Active Substance: DOCETAXEL
     Indication: BREAST CANCER
     Dosage: UNK UNK, CYCLIC (FOR 6 CYCLES EVERY 3 WEEKS)
     Dates: start: 201105, end: 201109

REACTIONS (5)
  - Madarosis [Unknown]
  - Hair disorder [Unknown]
  - Hair colour changes [Unknown]
  - Alopecia [Unknown]
  - Hair texture abnormal [Unknown]
